FAERS Safety Report 8553700-6 (Version None)
Quarter: 2012Q3

REPORT INFORMATION
  Report Type: 
  Country: None (occurrence: None)
  Receive Date: 20120719
  Receipt Date: 20120321
  Transmission Date: 20120928
  Serious: No
  Sender: FDA-Public Use
  Company Number: CM12-0016

PATIENT
  Age: 65 Year
  Sex: Female

DRUGS (1)
  1. EPINEPHRINE [Suspect]
     Indication: EYE DISORDER
     Dosage: 0.2ML IN A BALANCED SALINE SOLUTION, ONE TIME, INTRAOCULAR (OFF-LABEL USE)
     Route: 031

REACTIONS (3)
  - VISUAL ACUITY REDUCED [None]
  - EYE PAIN [None]
  - OFF LABEL USE [None]
